FAERS Safety Report 13191439 (Version 1)
Quarter: 2017Q1

REPORT INFORMATION
  Report Type: Spontaneous
  Country: JP (occurrence: JP)
  Receive Date: 20170207
  Receipt Date: 20170207
  Transmission Date: 20170428
  Serious: No
  Sender: FDA-Public Use
  Company Number: JP-LUPIN PHARMACEUTICALS INC.-2016-04940

PATIENT
  Age: 91 Year
  Sex: Female

DRUGS (6)
  1. MAGNESIUM OXIDE. [Concomitant]
     Active Substance: MAGNESIUM OXIDE
     Indication: PRODUCT USED FOR UNKNOWN INDICATION
     Dosage: 3 T
     Route: 065
  2. PANTETHINE [Concomitant]
     Active Substance: PANTETHINE
     Indication: PRODUCT USED FOR UNKNOWN INDICATION
     Dosage: 1 T
     Route: 065
  3. QUETIAPINE TABLET 50 % (AMEL) [Suspect]
     Active Substance: QUETIAPINE FUMARATE
     Indication: PRODUCT USED FOR UNKNOWN INDICATION
     Dosage: 0.15 DAILY
     Route: 048
     Dates: start: 20160907, end: 20160916
  4. ROHYPNOL [Concomitant]
     Active Substance: FLUNITRAZEPAM
     Indication: PRODUCT USED FOR UNKNOWN INDICATION
     Dosage: 1 T
     Route: 065
  5. AMLODIPINE [Concomitant]
     Active Substance: AMLODIPINE BESYLATE
     Indication: PRODUCT USED FOR UNKNOWN INDICATION
     Dosage: 1 T
     Route: 065
  6. PANTETHINE [Concomitant]
     Active Substance: PANTETHINE
     Dosage: 3 T
     Route: 065

REACTIONS (1)
  - Sedation [Recovered/Resolved]

NARRATIVE: CASE EVENT DATE: 20160916
